FAERS Safety Report 9929961 (Version 4)
Quarter: 2014Q1

REPORT INFORMATION
  Report Type: Report from Study
  Country: FR (occurrence: FR)
  Receive Date: 20140227
  Receipt Date: 20140311
  Transmission Date: 20141002
  Serious: Yes (Death, Hospitalization)
  Sender: FDA-Public Use
  Company Number: PHHO2014FR001984

PATIENT
  Sex: 0

DRUGS (5)
  1. BKM120 [Suspect]
     Indication: HEAD AND NECK CANCER METASTATIC
     Dosage: 100 MG, QD
     Route: 048
     Dates: start: 20140129, end: 20140202
  2. CANDESARTAN CILEXETIL [Suspect]
     Indication: HYPERTENSION
     Dosage: 16 MG, PER DAY
     Dates: start: 2009, end: 20140204
  3. PARACETAMOL CODEINE [Concomitant]
     Dosage: 2 G, PER DAY
     Dates: start: 201312
  4. PREGABALIN [Concomitant]
     Dosage: 375 MG, PER DAY
     Dates: start: 201312
  5. LEVOTHYROXIN [Concomitant]
     Dosage: 200 UG, PER DAY
     Dates: start: 2006

REACTIONS (2)
  - Dehydration [Fatal]
  - Hypotension [Fatal]
